FAERS Safety Report 6471515-X (Version None)
Quarter: 2009Q4

REPORT INFORMATION
  Report Type: 
  Country: None (occurrence: None)
  Receive Date: 20091203
  Receipt Date: 20080303
  Transmission Date: 20100525
  Serious: Yes (Death, Other)
  Sender: FDA-Public Use
  Company Number: IT-ELI_LILLY_AND_COMPANY-IT200802006329

PATIENT
  Sex: Female

DRUGS (9)
  1. ALIMTA [Suspect]
     Indication: PLEURAL MESOTHELIOMA
     Dosage: 500 MG/M2, UNKNOWN
     Route: 042
     Dates: start: 20080115
  2. CARBOPLATIN [Concomitant]
     Indication: PLEURAL MESOTHELIOMA
     Dosage: 350 MG/KG, UNKNOWN
     Route: 042
     Dates: start: 20080115
  3. DOBETIN [Concomitant]
     Dosage: 1000 MG, UNKNOWN
  4. ELAZOR [Concomitant]
     Dosage: 100 MG, UNKNOWN
  5. NEXIUM [Concomitant]
     Dosage: 20 MG, UNKNOWN
  6. LASIX [Concomitant]
     Dosage: 25 MG, UNKNOWN
  7. SOLDESAM [Concomitant]
     Dosage: UNK, UNKNOWN
  8. GLUTATHIONE [Concomitant]
     Dosage: UNK, UNKNOWN
  9. ZOFRAN [Concomitant]
     Indication: BENIGN PLEURAL MESOTHELIOMA
     Dosage: 16 MG, UNKNOWN
     Route: 042
     Dates: start: 20080115, end: 20080226

REACTIONS (7)
  - BLOOD BILIRUBIN INCREASED [None]
  - CONJUNCTIVAL HAEMORRHAGE [None]
  - DYSPNOEA [None]
  - HEPATIC ENZYME INCREASED [None]
  - MUCOSAL INFLAMMATION [None]
  - MYOCARDIAL INFARCTION [None]
  - SYNCOPE [None]
